FAERS Safety Report 17543425 (Version 1)
Quarter: 2020Q1

REPORT INFORMATION
  Report Type: Spontaneous
  Country: US (occurrence: US)
  Receive Date: 20200316
  Receipt Date: 20200316
  Transmission Date: 20200409
  Serious: Yes (Hospitalization, Other)
  Sender: FDA-Public Use
  Company Number: US-ALVOGEN-2020-ALVOGEN-107773

PATIENT
  Age: 15 Year
  Sex: Male

DRUGS (2)
  1. VILAZODONE [Suspect]
     Active Substance: VILAZODONE
     Indication: PRODUCT USED FOR UNKNOWN INDICATION
     Dosage: 30 TABLETS OF VILAZODONE (20 MG)
     Route: 048
  2. BUPROPION. [Suspect]
     Active Substance: BUPROPION
     Indication: PRODUCT USED FOR UNKNOWN INDICATION
     Dosage: 60 TABLETS OF BUPROPION (300 MG)
     Route: 048

REACTIONS (4)
  - Intentional overdose [Unknown]
  - Serotonin syndrome [Recovering/Resolving]
  - Cerebral infarction [Recovering/Resolving]
  - Partial seizures [Unknown]
